FAERS Safety Report 11237952 (Version 1)
Quarter: 2015Q3

REPORT INFORMATION
  Report Type: Spontaneous
  Country: US (occurrence: US)
  Receive Date: 20150703
  Receipt Date: 20150703
  Transmission Date: 20151125
  Serious: No
  Sender: FDA-Public Use
  Company Number: PHEH2015US012864

PATIENT

DRUGS (5)
  1. LAMOTRIGINE. [Concomitant]
     Active Substance: LAMOTRIGINE
     Indication: SEIZURE
     Dosage: UNK
     Route: 065
  2. AFINITOR DISPERZ [Suspect]
     Active Substance: EVEROLIMUS
     Indication: ASTROCYTOMA, LOW GRADE
     Dosage: UNK UNK, QD
     Route: 048
  3. KEPPRA [Concomitant]
     Active Substance: LEVETIRACETAM
     Indication: PRODUCT USED FOR UNKNOWN INDICATION
     Dosage: UNK
     Route: 048
  4. RISPERDAL [Concomitant]
     Active Substance: RISPERIDONE
     Indication: PRODUCT USED FOR UNKNOWN INDICATION
     Dosage: UNK
     Route: 065
  5. DEPAKOTE [Concomitant]
     Active Substance: DIVALPROEX SODIUM
     Indication: SEIZURE
     Route: 065

REACTIONS (1)
  - Drug level increased [Not Recovered/Not Resolved]

NARRATIVE: CASE EVENT DATE: 20150701
